FAERS Safety Report 9637385 (Version 1)
Quarter: 2013Q4

REPORT INFORMATION
  Report Type: Report from Study
  Country: BR (occurrence: BR)
  Receive Date: 20131022
  Receipt Date: 20131022
  Transmission Date: 20140711
  Serious: Yes (Hospitalization)
  Sender: FDA-Public Use
  Company Number: PHHY2013BR118230

PATIENT
  Sex: Male
  Weight: 68 kg

DRUGS (2)
  1. EXELON PATCH [Suspect]
     Indication: DEMENTIA ALZHEIMER^S TYPE
     Dosage: 4.6 MG, DAILY AT NIGHT (PATCH 5 CM2)
     Route: 062
     Dates: start: 20130304
  2. DRUG THERAPY NOS [Concomitant]
     Indication: DEPRESSION
     Dosage: UNK UKN, UNK

REACTIONS (7)
  - Cardiac disorder [Unknown]
  - Pleural effusion [Unknown]
  - Renal failure [Unknown]
  - Fluid retention [Unknown]
  - Dementia Alzheimer^s type [Unknown]
  - Dementia [Unknown]
  - Renal disorder [Unknown]
